FAERS Safety Report 20608046 (Version 7)
Quarter: 2023Q1

REPORT INFORMATION
  Report Type: Spontaneous
  Country: US (occurrence: US)
  Receive Date: 20220317
  Receipt Date: 20230331
  Transmission Date: 20230418
  Serious: No
  Sender: FDA-Public Use
  Company Number: US-PFIZER INC-202200363809

PATIENT
  Age: 59 Year
  Sex: Female

DRUGS (1)
  1. XELJANZ XR [Suspect]
     Active Substance: TOFACITINIB CITRATE
     Indication: Rheumatoid arthritis
     Dosage: 11 MG, DAILY
     Route: 048
     Dates: start: 202112

REACTIONS (9)
  - Discouragement [Unknown]
  - Disease recurrence [Unknown]
  - Herpes zoster [Unknown]
  - Fall [Unknown]
  - Arthralgia [Unknown]
  - Pain in extremity [Unknown]
  - Influenza [Recovered/Resolved]
  - Cough [Unknown]
  - Product dose omission issue [Unknown]

NARRATIVE: CASE EVENT DATE: 20220927
